FAERS Safety Report 25867778 (Version 1)
Quarter: 2025Q4

REPORT INFORMATION
  Report Type: Spontaneous
  Country: CN (occurrence: CN)
  Receive Date: 20251001
  Receipt Date: 20251001
  Transmission Date: 20260117
  Serious: Yes (Hospitalization, Other)
  Sender: NOVAST LABORATORIES LTD
  Company Number: CN-NOVAST LABORATORIES INC.-2025NOV000279

PATIENT
  Age: 58 Year
  Sex: Female

DRUGS (3)
  1. METFORMIN [Suspect]
     Active Substance: METFORMIN HYDROCHLORIDE
     Indication: Product used for unknown indication
     Dosage: APPROXIMATELY 30 TABLETS/15 G
     Route: 065
  2. RESERPINE [Suspect]
     Active Substance: RESERPINE
     Indication: Product used for unknown indication
     Dosage: APPROXIMATELY 100 TABLETS/25 MG
     Route: 065
  3. ENALAPRIL MALEATE [Suspect]
     Active Substance: ENALAPRIL MALEATE
     Indication: Product used for unknown indication
     Dosage: APPROXIMATELY 16 TABLETS/80 MG
     Route: 065

REACTIONS (7)
  - Drug interaction [Recovered/Resolved]
  - Shock [Recovered/Resolved]
  - Lactic acidosis [Recovered/Resolved]
  - Hypoglycaemia [Recovered/Resolved]
  - Toxicity to various agents [Recovered/Resolved]
  - Intentional overdose [Recovered/Resolved]
  - Multiple organ dysfunction syndrome [Recovered/Resolved]
